FAERS Safety Report 9057745 (Version 1)
Quarter: 2013Q1

REPORT INFORMATION
  Report Type: Spontaneous
  Country: US (occurrence: None)
  Receive Date: 20130204
  Receipt Date: 20130204
  Transmission Date: 20140127
  Serious: Yes (Other)
  Sender: FDA-Public Use
  Company Number: None

PATIENT
  Sex: Female

DRUGS (1)
  1. SIMPONI [Suspect]
     Indication: RHEUMATOID ARTHRITIS
     Dosage: 50 MG/0.5 ML  ONCE MONTHLY  SUB Q
     Dates: start: 201209, end: 201210

REACTIONS (4)
  - Systemic lupus erythematosus [None]
  - Decreased appetite [None]
  - Weight decreased [None]
  - Fatigue [None]
